FAERS Safety Report 9262764 (Version 1)
Quarter: 2013Q2

REPORT INFORMATION
  Report Type: Spontaneous
  Country: IT (occurrence: None)
  Receive Date: 20130426
  Receipt Date: 20130426
  Transmission Date: 20140414
  Serious: Yes (Hospitalization)
  Sender: FDA-Public Use
  Company Number: IPC201304-000144

PATIENT
  Age: 86 Year
  Sex: Female

DRUGS (1)
  1. FUROSEMIDE [Suspect]
     Dosage: 25 MG/DAY

REACTIONS (7)
  - Hypocalcaemia [None]
  - Cardiac failure [None]
  - Pulmonary oedema [None]
  - Chronic obstructive pulmonary disease [None]
  - Hyperhidrosis [None]
  - Palpitations [None]
  - Electrocardiogram QT prolonged [None]
